FAERS Safety Report 11239434 (Version 1)
Quarter: 2015Q3

REPORT INFORMATION
  Report Type: Spontaneous
  Country: US (occurrence: None)
  Receive Date: 20150701
  Receipt Date: 20150701
  Transmission Date: 20151125
  Serious: Yes (Disabling)
  Sender: FDA-Public Use
  Company Number: None

PATIENT
  Age: 58 Year
  Sex: Male
  Weight: 95.26 kg

DRUGS (9)
  1. FARXIGA [Suspect]
     Active Substance: DAPAGLIFLOZIN PROPANEDIOL
     Indication: BLOOD GLUCOSE INCREASED
     Dosage: TAKEN BY MOUTH
     Route: 048
  2. INSULIN [Concomitant]
     Active Substance: INSULIN NOS
  3. SIMVASTATIN. [Concomitant]
     Active Substance: SIMVASTATIN
  4. FISH OIL [Concomitant]
     Active Substance: FISH OIL
  5. FARXIGA [Suspect]
     Active Substance: DAPAGLIFLOZIN PROPANEDIOL
     Indication: WEIGHT DECREASED
     Dosage: TAKEN BY MOUTH
     Route: 048
  6. LISINOPRIL. [Concomitant]
     Active Substance: LISINOPRIL
  7. BASIC VITAMIN [Concomitant]
  8. ASPIRIN. [Concomitant]
     Active Substance: ASPIRIN
  9. GLUCOSAMINE [Concomitant]
     Active Substance: GLUCOSAMINE

REACTIONS (1)
  - Muscle spasms [None]

NARRATIVE: CASE EVENT DATE: 20150601
